APPROVED DRUG PRODUCT: DRAX EXAMETAZIME
Active Ingredient: TECHNETIUM TC-99M EXAMETAZIME KIT
Strength: N/A
Dosage Form/Route: POWDER;INTRAVENOUS
Application: N208870 | Product #001
Applicant: JUBILANT DRAXIMAGE INC DBA JUBILANT RADIOPHARMA
Approved: Aug 17, 2017 | RLD: No | RS: No | Type: RX